FAERS Safety Report 25223029 (Version 3)
Quarter: 2025Q2

REPORT INFORMATION
  Report Type: Spontaneous
  Country: JP (occurrence: JP)
  Receive Date: 20250422
  Receipt Date: 20250506
  Transmission Date: 20250716
  Serious: Yes (Hospitalization, Other)
  Sender: JOHNSON AND JOHNSON
  Company Number: JP-JNJFOC-20220216117

PATIENT
  Age: 83 Year
  Sex: Female
  Weight: 67 kg

DRUGS (16)
  1. UPTRAVI [Suspect]
     Active Substance: SELEXIPAG
     Indication: Pulmonary arterial hypertension
     Route: 048
     Dates: end: 2021
  2. UPTRAVI [Suspect]
     Active Substance: SELEXIPAG
     Dosage: DOSE UNKNOWN, GRADUALLY INCREASED
     Route: 048
  3. UPTRAVI [Suspect]
     Active Substance: SELEXIPAG
     Route: 048
  4. UPTRAVI [Suspect]
     Active Substance: SELEXIPAG
     Dosage: DOSE UNKNOWN, DECREASED
     Route: 048
  5. UPTRAVI [Suspect]
     Active Substance: SELEXIPAG
     Route: 048
     Dates: start: 2020, end: 2021
  6. UPTRAVI [Suspect]
     Active Substance: SELEXIPAG
     Route: 048
     Dates: start: 2021
  7. UPTRAVI [Suspect]
     Active Substance: SELEXIPAG
     Route: 048
  8. OPSUMIT [Suspect]
     Active Substance: MACITENTAN
     Indication: Pulmonary arterial hypertension
     Route: 048
  9. VONOPRAZAN FUMARATE [Concomitant]
     Active Substance: VONOPRAZAN FUMARATE
     Indication: Product used for unknown indication
     Route: 048
  10. CLOTIAZEPAM [Concomitant]
     Active Substance: CLOTIAZEPAM
     Indication: Product used for unknown indication
     Route: 048
  11. ETIZOLAM [Concomitant]
     Active Substance: ETIZOLAM
     Indication: Product used for unknown indication
     Route: 048
  12. ADCIRCA [Concomitant]
     Active Substance: TADALAFIL
     Indication: Pulmonary arterial hypertension
     Route: 048
  13. FERINJECT [Concomitant]
     Active Substance: FERRIC CARBOXYMALTOSE
     Indication: Anaemia
     Dates: start: 202503, end: 202503
  14. FERINJECT [Concomitant]
     Active Substance: FERRIC CARBOXYMALTOSE
     Dates: start: 202503, end: 20250302
  15. FERINJECT [Concomitant]
     Active Substance: FERRIC CARBOXYMALTOSE
     Dates: start: 20250302, end: 20250302
  16. CLOSTRIDIUM BUTYRICUM [Concomitant]
     Indication: Diarrhoea

REACTIONS (4)
  - Iron deficiency anaemia [Recovering/Resolving]
  - Off label use [Unknown]
  - Diarrhoea [Recovering/Resolving]
  - Insomnia [Unknown]

NARRATIVE: CASE EVENT DATE: 20201101
